FAERS Safety Report 5425833-4 (Version None)
Quarter: 2007Q3

REPORT INFORMATION
  Report Type: 
  Country: None (occurrence: None)
  Receive Date: 20070827
  Receipt Date: 20070822
  Transmission Date: 20080115
  Serious: Yes (Hospitalization)
  Sender: FDA-Public Use
  Company Number: DEWYE210023AUG07

PATIENT
  Age: 13 Month
  Sex: Male
  Weight: 9 kg

DRUGS (1)
  1. VENLAFAXINE HCL [Suspect]
     Dosage: ONE CAPSULE (OVERDOSE AMOUNT 75 MG)
     Route: 048
     Dates: start: 20070822, end: 20070822

REACTIONS (2)
  - ACCIDENTAL DRUG INTAKE BY CHILD [None]
  - ACCIDENTAL OVERDOSE [None]
